FAERS Safety Report 5364050-3 (Version None)
Quarter: 2007Q2

REPORT INFORMATION
  Report Type: 
  Country: None (occurrence: None)
  Receive Date: 20070620
  Receipt Date: 20070609
  Transmission Date: 20071010
  Serious: Yes (Other)
  Sender: FDA-Public Use
  Company Number: US-PFIZER INC-2007040668

PATIENT
  Sex: Male
  Weight: 108.9 kg

DRUGS (9)
  1. CHANTIX [Suspect]
     Indication: SMOKING CESSATION THERAPY
  2. DOCUSATE SODIUM [Interacting]
     Indication: CONSTIPATION
  3. EFFEXOR [Concomitant]
     Indication: MENTAL DISORDER
  4. TOPAMAX [Concomitant]
     Indication: CONVULSION
  5. CELEBREX [Concomitant]
  6. LIPITOR [Concomitant]
  7. TYLENOL [Concomitant]
     Indication: PAIN
  8. DIAZEPAM [Concomitant]
  9. FLEXERIL [Concomitant]

REACTIONS (6)
  - ANTINUCLEAR ANTIBODY INCREASED [None]
  - BLOOD GLUCOSE DECREASED [None]
  - BLOOD PRESSURE DECREASED [None]
  - DRUG INTERACTION [None]
  - PARAESTHESIA ORAL [None]
  - WEIGHT INCREASED [None]
